FAERS Safety Report 7243993-X (Version None)
Quarter: 2011Q1

REPORT INFORMATION
  Report Type: 
  Country: None (occurrence: None)
  Receive Date: 20110125
  Receipt Date: 20110114
  Transmission Date: 20110831
  Serious: Yes (Other)
  Sender: FDA-Public Use
  Company Number: JP-GILEAD-E2B_00001050

PATIENT
  Age: 69 Year
  Sex: Male

DRUGS (1)
  1. HEPSERA [Suspect]
     Indication: HEPATITIS B
     Dosage: 10MG PER DAY
     Route: 048
     Dates: start: 20050301

REACTIONS (7)
  - FANCONI SYNDROME ACQUIRED [None]
  - RENAL DISORDER [None]
  - GLUCOSE URINE PRESENT [None]
  - PROTEIN URINE PRESENT [None]
  - BACK PAIN [None]
  - HYPOPHOSPHATAEMIA [None]
  - OSTEOMALACIA [None]
